FAERS Safety Report 12648596 (Version 1)
Quarter: 2016Q3

REPORT INFORMATION
  Report Type: Spontaneous
  Country: FR (occurrence: FR)
  Receive Date: 20160812
  Receipt Date: 20160812
  Transmission Date: 20161109
  Serious: Yes (Other)
  Sender: FDA-Public Use
  Company Number: FR-TEVA-682631ISR

PATIENT
  Age: 79 Year
  Sex: Female

DRUGS (14)
  1. DOLIPRANE [Concomitant]
     Active Substance: ACETAMINOPHEN
     Dosage: 2 DF  1 TO 3 TIME PER DAY
  2. ELISOR 20 MG [Concomitant]
     Dosage: IN THE EVENING
  3. UVEDOSE 100 000 UI [Concomitant]
     Dosage: 1 AMPOULE THE 20TH OF THE MONTH
  4. ACTONEL 75 MG [Concomitant]
     Dosage: 1 DF ON FIRST AND SECOND DAY OF MONTH
     Dates: start: 20160602
  5. KLEAN-PREP [Concomitant]
     Active Substance: ELECTROLYTES NOS\POLYETHYLENE GLYCOL 3350
     Dosage: 1 DOSAGE FORMS DAILY; IF NEEDED
  6. RISEORONATE TEVA 75 MG [Suspect]
     Active Substance: RISEDRONATE SODIUM
     Indication: OSTEOPOROSIS
     Dosage: 1 DOSAGE FORMS DAILY;
     Route: 048
     Dates: start: 20160704, end: 20160704
  7. MACROGOL 4000 [Concomitant]
     Active Substance: POLYETHYLENE GLYCOL 4000
     Dosage: 3 DOSAGE FORMS DAILY; 3 DF IN THE EVENING
  8. FLECAINE LP 150 MG [Concomitant]
     Dosage: 1 DOSAGE FORMS DAILY; 1 DF IN THE EVENING
  9. MOBIC 15 MG [Concomitant]
     Dosage: .5 DOSAGE FORMS DAILY;
  10. LATANOPROST. [Concomitant]
     Active Substance: LATANOPROST
     Dosage: 1 DOSAGE FORMS DAILY; 1 DROPS IN BOTH EYES IN THE EVENING
     Route: 047
  11. FUROSEMIDE  20 MG [Concomitant]
     Active Substance: FUROSEMIDE
     Dosage: 1 DOSAGE FORMS DAILY; 1 DF IN THE MORNING
  12. ZYMAD 80000 UI [Concomitant]
     Dosage: .0111 DOSAGE FORMS DAILY; FORM OF ADMINISTRATION: AMPOULE
     Dates: start: 20160602
  13. VIVAMYNE [Concomitant]
     Dosage: 1 DOSAGE FORMS DAILY; 1 DF IN THE MORNING
  14. LANZOR 15 MG [Concomitant]
     Dosage: 1 DOSAGE FORMS DAILY; 1 DF IN THE EVENING

REACTIONS (14)
  - Hyperhidrosis [Recovered/Resolved]
  - Nausea [Recovering/Resolving]
  - Arthralgia [Recovered/Resolved]
  - Headache [Recovered/Resolved]
  - Hypoaesthesia [None]
  - Speech disorder [None]
  - Chills [Recovered/Resolved]
  - Eye swelling [None]
  - Dysphagia [Recovered/Resolved]
  - Cough [Recovered/Resolved]
  - Ocular hyperaemia [None]
  - Visual impairment [Recovering/Resolving]
  - Palpitations [Recovered/Resolved]
  - Aphonia [None]

NARRATIVE: CASE EVENT DATE: 20160704
